FAERS Safety Report 20454434 (Version 1)
Quarter: 2022Q1

REPORT INFORMATION
  Report Type: Report from Study
  Country: US (occurrence: US)
  Receive Date: 20220210
  Receipt Date: 20220210
  Transmission Date: 20220423
  Serious: Yes (Other)
  Sender: FDA-Public Use
  Company Number: US-JAZZ-2020-US-009077

PATIENT
  Age: 32 Year
  Sex: Female

DRUGS (56)
  1. XYREM [Suspect]
     Active Substance: SODIUM OXYBATE
     Indication: Narcolepsy
     Dosage: 2.25 GRAM, BID
     Route: 048
     Dates: start: 201411, end: 201411
  2. XYREM [Suspect]
     Active Substance: SODIUM OXYBATE
     Indication: Cataplexy
     Dosage: DOSE ADJUSTMENTS
     Route: 048
     Dates: start: 201411, end: 202001
  3. XYREM [Suspect]
     Active Substance: SODIUM OXYBATE
     Dosage: 5 GRAM, FIRST DOSE
     Route: 048
     Dates: start: 202001
  4. XYREM [Suspect]
     Active Substance: SODIUM OXYBATE
     Dosage: 4 GRAM, SECOND DOSE
     Route: 048
     Dates: start: 202001
  5. PLAQUENIL [Concomitant]
     Active Substance: HYDROXYCHLOROQUINE SULFATE
  6. LISINOPRIL [Concomitant]
     Active Substance: LISINOPRIL
  7. ACYCLOVIR [Concomitant]
     Active Substance: ACYCLOVIR
  8. CONCERTA [Concomitant]
     Active Substance: METHYLPHENIDATE HYDROCHLORIDE
  9. EPIPEN [Concomitant]
     Active Substance: EPINEPHRINE
  10. FLONASE ALLERGY RELIEF [Concomitant]
     Active Substance: FLUTICASONE PROPIONATE
  11. IMITREX [Concomitant]
     Active Substance: SUMATRIPTAN SUCCINATE
  12. OMEPRAZOLE [Concomitant]
     Active Substance: OMEPRAZOLE
  13. PROVENTIL HFA [SALBUTAMOL] [Concomitant]
  14. ZETIA [Concomitant]
     Active Substance: EZETIMIBE
  15. ZOFRAN [Concomitant]
     Active Substance: ONDANSETRON HYDROCHLORIDE
  16. ZOVIRAX [Concomitant]
     Active Substance: ACYCLOVIR
  17. ALLEGRA ALLERGY [Concomitant]
     Active Substance: FEXOFENADINE HYDROCHLORIDE
  18. BUTALBITAL AND ACETAMINOPHEN [Concomitant]
     Active Substance: ACETAMINOPHEN\BUTALBITAL
  19. PROVIGIL [Concomitant]
     Active Substance: MODAFINIL
  20. XANAX [Concomitant]
     Active Substance: ALPRAZOLAM
  21. MICROGESTIN FE [Concomitant]
     Active Substance: ETHINYL ESTRADIOL\FERROUS FUMARATE\NORETHINDRONE ACETATE
  22. BENTYL [Concomitant]
     Active Substance: DICYCLOMINE HYDROCHLORIDE
  23. AMOXICILLIN\CLAVULANIC ACID [Concomitant]
     Active Substance: AMOXICILLIN\CLAVULANIC ACID
  24. AMOXICILLIN [Concomitant]
     Active Substance: AMOXICILLIN
  25. AZELASTINE [Concomitant]
     Active Substance: AZELASTINE
  26. BENZONATATE [Concomitant]
     Active Substance: BENZONATATE
  27. BUTALBITAL, ACETAMINOPHEN, AND CAFFEINE [Concomitant]
     Active Substance: ACETAMINOPHEN\BUTALBITAL\CAFFEINE
  28. CYCLOBENZAPRINE [Concomitant]
     Active Substance: CYCLOBENZAPRINE
  29. CYMBALTA [Concomitant]
     Active Substance: DULOXETINE HYDROCHLORIDE
  30. DYMISTA [Concomitant]
     Active Substance: AZELASTINE HYDROCHLORIDE\FLUTICASONE PROPIONATE
  31. FERROUS SULFATE [Concomitant]
     Active Substance: FERROUS SULFATE
  32. FIORINAL [CODEINE PHOSPHATE;PARACETAMOL;SALICYLAMIDE] [Concomitant]
  33. HAWTHORNE [Concomitant]
  34. MECLIZINE [Concomitant]
     Active Substance: MECLIZINE HYDROCHLORIDE
  35. METHYLPHENIDATE [Concomitant]
     Active Substance: METHYLPHENIDATE
  36. NIFEDIPINE [Concomitant]
     Active Substance: NIFEDIPINE
  37. RANITIDINE [Concomitant]
     Active Substance: RANITIDINE
  38. RESTASIS [Concomitant]
     Active Substance: CYCLOSPORINE
  39. RITALIN [Concomitant]
     Active Substance: METHYLPHENIDATE HYDROCHLORIDE
  40. SERTRALINE HYDROCHLORIDE [Concomitant]
     Active Substance: SERTRALINE HYDROCHLORIDE
  41. TAMIFLU [Concomitant]
     Active Substance: OSELTAMIVIR PHOSPHATE
  42. TAYTULLA [Concomitant]
     Active Substance: ETHINYL ESTRADIOL\NORETHINDRONE ACETATE
  43. VIENVA TM [Concomitant]
     Active Substance: ETHINYL ESTRADIOL\LEVONORGESTREL
  44. VITAMIN D3 [Concomitant]
     Active Substance: CHOLECALCIFEROL
  45. ZITHROMAX [Concomitant]
     Active Substance: AZITHROMYCIN DIHYDRATE
  46. ALBUTEROL SULFATE [Concomitant]
     Active Substance: ALBUTEROL SULFATE
     Indication: Product used for unknown indication
  47. ASPIRIN [Concomitant]
     Active Substance: ASPIRIN
     Indication: Product used for unknown indication
  48. BUSPAR [Concomitant]
     Active Substance: BUSPIRONE HYDROCHLORIDE
     Indication: Product used for unknown indication
  49. DICYCLOMINE CO [Concomitant]
     Indication: Product used for unknown indication
  50. ENALAPRIL [Concomitant]
     Active Substance: ENALAPRIL
     Indication: Product used for unknown indication
  51. FLUOXETINE [Concomitant]
     Active Substance: FLUOXETINE HYDROCHLORIDE
     Indication: Product used for unknown indication
  52. FLUTICASONE PROPIONATE [Concomitant]
     Active Substance: FLUTICASONE PROPIONATE
     Indication: Product used for unknown indication
  53. LYSINE [Concomitant]
     Active Substance: LYSINE
     Indication: Product used for unknown indication
  54. METOPROLOL TARTRATE [Concomitant]
     Active Substance: METOPROLOL TARTRATE
     Indication: Product used for unknown indication
  55. NORETHINDRONE ACETATE [Concomitant]
     Active Substance: NORETHINDRONE ACETATE
     Indication: Product used for unknown indication
  56. PITOLISANT [Concomitant]
     Active Substance: PITOLISANT
     Indication: Product used for unknown indication

REACTIONS (6)
  - Coronary artery dissection [Unknown]
  - Premature delivery [Unknown]
  - Pre-eclampsia [Unknown]
  - COVID-19 [Unknown]
  - Hypotension [Unknown]
  - Exposure during pregnancy [Unknown]

NARRATIVE: CASE EVENT DATE: 20200501
